FAERS Safety Report 10244617 (Version 1)
Quarter: 2014Q2

REPORT INFORMATION
  Report Type: Report from Study
  Country: CA (occurrence: CA)
  Receive Date: 20140618
  Receipt Date: 20140618
  Transmission Date: 20141212
  Serious: Yes (Hospitalization)
  Sender: FDA-Public Use
  Company Number: CA-BRISTOL-MYERS SQUIBB COMPANY-21016514

PATIENT
  Age: 83 Year
  Sex: Female

DRUGS (5)
  1. ABATACEPT SUBQ INJECTION 125MG/ML [Suspect]
     Indication: RHEUMATOID ARTHRITIS
     Route: 058
     Dates: start: 201310
  2. ADVIL [Concomitant]
  3. TYLENOL [Concomitant]
  4. ALEVE [Concomitant]
  5. PLAQUENIL [Concomitant]

REACTIONS (1)
  - Dyspnoea [Unknown]
